FAERS Safety Report 8378798-X (Version None)
Quarter: 2012Q2

REPORT INFORMATION
  Report Type: 
  Country: None (occurrence: None)
  Receive Date: 20120523
  Receipt Date: 20120517
  Transmission Date: 20120825
  Serious: Yes (Other)
  Sender: FDA-Public Use
  Company Number: US-AMGEN-USASP2012029501

PATIENT
  Age: 82 Year
  Sex: Female
  Weight: 57.143 kg

DRUGS (7)
  1. OXYCODONE HCL [Concomitant]
     Dosage: UNK
  2. CALCIUM [Concomitant]
  3. FISH OIL [Concomitant]
  4. ZOCOR [Concomitant]
     Indication: DYSLIPIDAEMIA
     Dosage: 20 MG, UNK
     Route: 048
  5. PROLIA [Suspect]
     Indication: OSTEOPOROSIS POSTMENOPAUSAL
     Dosage: 60 MG, ONE TIME DOSE
     Route: 058
     Dates: start: 20111019, end: 20111019
  6. VITAMIN D [Concomitant]
  7. VITAMINS                           /00067501/ [Concomitant]

REACTIONS (6)
  - HYPOAESTHESIA [None]
  - PAIN IN JAW [None]
  - PAIN IN EXTREMITY [None]
  - TOOTH FRACTURE [None]
  - MYALGIA [None]
  - MUSCULAR WEAKNESS [None]
